FAERS Safety Report 24983931 (Version 1)
Quarter: 2025Q1

REPORT INFORMATION
  Report Type: Spontaneous
  Country: US (occurrence: US)
  Receive Date: 20250219
  Receipt Date: 20250219
  Transmission Date: 20250409
  Serious: Yes (Other)
  Sender: OTSUKA
  Company Number: US-OTSUKA-2024_013876

PATIENT
  Age: 17 Month
  Sex: Female

DRUGS (16)
  1. BUSULFAN [Suspect]
     Active Substance: BUSULFAN
     Indication: Interferon gamma receptor deficiency
     Route: 065
  2. BUSULFAN [Suspect]
     Active Substance: BUSULFAN
     Indication: Mycobacterial infection
  3. BUSULFAN [Suspect]
     Active Substance: BUSULFAN
     Indication: Stem cell transplant
  4. BUSULFAN [Suspect]
     Active Substance: BUSULFAN
     Indication: Bone marrow conditioning regimen
  5. FLUDARABINE [Suspect]
     Active Substance: FLUDARABINE PHOSPHATE
     Indication: Stem cell transplant
     Route: 065
  6. FLUDARABINE [Suspect]
     Active Substance: FLUDARABINE PHOSPHATE
     Indication: Bone marrow conditioning regimen
  7. FLUDARABINE [Suspect]
     Active Substance: FLUDARABINE PHOSPHATE
     Indication: Interferon gamma receptor deficiency
  8. FLUDARABINE [Suspect]
     Active Substance: FLUDARABINE PHOSPHATE
     Indication: Mycobacterial infection
  9. AMOXICILLIN [Concomitant]
     Active Substance: AMOXICILLIN
     Indication: Evidence based treatment
     Route: 065
  10. AMOXICILLIN [Concomitant]
     Active Substance: AMOXICILLIN
     Indication: Otitis media acute
  11. RIFAMPIN [Concomitant]
     Active Substance: RIFAMPIN
     Indication: Evidence based treatment
     Route: 065
  12. ISONIAZID [Concomitant]
     Active Substance: ISONIAZID
     Indication: Evidence based treatment
     Route: 065
  13. PYRAZINAMIDE [Concomitant]
     Active Substance: PYRAZINAMIDE
     Indication: Evidence based treatment
     Route: 065
  14. ETHAMBUTOL [Concomitant]
     Active Substance: ETHAMBUTOL HYDROCHLORIDE
     Indication: Evidence based treatment
     Route: 065
  15. AZITHROMYCIN [Concomitant]
     Active Substance: AZITHROMYCIN
     Indication: Product used for unknown indication
     Route: 065
  16. CIPROFLOXACIN [Concomitant]
     Active Substance: CIPROFLOXACIN
     Indication: Product used for unknown indication
     Route: 065

REACTIONS (3)
  - Norovirus infection [Unknown]
  - Enterococcal infection [Unknown]
  - Drug effective for unapproved indication [Unknown]
